FAERS Safety Report 6504755-1 (Version None)
Quarter: 2009Q4

REPORT INFORMATION
  Report Type: 
  Country: None (occurrence: None)
  Receive Date: 20091216
  Receipt Date: 20091203
  Transmission Date: 20100525
  Serious: Yes (Hospitalization)
  Sender: FDA-Public Use
  Company Number: 451347

PATIENT
  Age: 12 Year
  Sex: Male
  Weight: 56 kg

DRUGS (5)
  1. ONDANSETRON [Suspect]
     Indication: PROCEDURAL NAUSEA
     Dosage: 4 MG, INTRAVENOUS
     Route: 042
     Dates: start: 20080501, end: 20080509
  2. (FLIXOTIDE) [Concomitant]
  3. ISOFLURANE [Concomitant]
  4. (LIGNOCAINE /00033401/) [Concomitant]
  5. PROPOFOL [Concomitant]

REACTIONS (1)
  - MYOCLONUS [None]
